FAERS Safety Report 19184697 (Version 1)
Quarter: 2021Q2

REPORT INFORMATION
  Report Type: Spontaneous
  Country: NL (occurrence: NL)
  Receive Date: 20210427
  Receipt Date: 20210427
  Transmission Date: 20210717
  Serious: Yes (Hospitalization)
  Sender: FDA-Public Use
  Company Number: NL-TEVA-2021-NL-1904172

PATIENT
  Age: 70 Year
  Sex: Female
  Weight: 70 kg

DRUGS (4)
  1. BISOPROLOL FUMARAAT / BRAND NAME NOT SPECIFIED [Concomitant]
     Active Substance: BISOPROLOL FUMARATE
     Dosage: EEL 1 PC. ,THERAPY START DATE AND END DATE : ASKED BUT UNKNOWN
     Route: 048
  2. METFORMINE HYDROCHLORIDE / BRAND NAME NOT SPECIFIED [Concomitant]
     Dosage: EEL 1 PC. , THERAPY START DATE AND END DATE : ASKED BUT UNKNOWN
     Route: 048
  3. TAMOXIFEN TABLET 10MG / BRAND NAME NOT SPECIFIED [Suspect]
     Active Substance: TAMOXIFEN
     Indication: BREAST CANCER
     Dosage: 1 DOSAGE FORMS DAILY;
     Dates: start: 201803, end: 20210315
  4. APIXABAN TABLET 5MG / ELIQUIS TABLET FILMOMHULD 5MG [Concomitant]
     Dosage: EEL 1 PC. , THERAPY START DATE AND END DATE : ASKED BUT UNKNOWN
     Route: 048

REACTIONS (1)
  - Organising pneumonia [Recovering/Resolving]

NARRATIVE: CASE EVENT DATE: 201807
